FAERS Safety Report 8032690-9 (Version None)
Quarter: 2012Q1

REPORT INFORMATION
  Report Type: 
  Country: None (occurrence: None)
  Receive Date: 20120110
  Receipt Date: 20120103
  Transmission Date: 20120608
  Serious: Yes (Hospitalization)
  Sender: FDA-Public Use
  Company Number: US-BAYER-2011-044974

PATIENT
  Age: 29 Year
  Sex: Female
  Weight: 49.887 kg

DRUGS (8)
  1. DROSPIRENONE AND ETHINYL ESTRADIOL [Suspect]
     Indication: CONTRACEPTION
     Dosage: UNK
     Dates: start: 20080701, end: 20090301
  2. CLONAZEPAM [Concomitant]
     Dosage: 0.5 MG, UNK
     Dates: start: 20080529
  3. PRILOSEC [Concomitant]
     Dosage: 20 MG, MT
  4. SERTRALINE HYDROCHLORIDE [Concomitant]
     Dosage: 100 MG, UNK
     Dates: start: 20080529, end: 20080627
  5. YASMIN [Suspect]
     Indication: CONTRACEPTION
     Dosage: UNK
     Route: 048
     Dates: start: 20071220, end: 20080601
  6. ZOLOFT [Concomitant]
     Indication: ANXIETY
     Dosage: 50 MG, UNK
  7. ACIPHEX [Concomitant]
     Dosage: 20 MG, QD
  8. ASACOL [Concomitant]
     Dosage: 2 DF, BID

REACTIONS (14)
  - ANXIETY [None]
  - GALLBLADDER DISORDER [None]
  - PAIN [None]
  - BACK PAIN [None]
  - CHOLECYSTITIS CHRONIC [None]
  - EMOTIONAL DISTRESS [None]
  - COLITIS [None]
  - DYSPNOEA [None]
  - NAUSEA [None]
  - GENERAL PHYSICAL HEALTH DETERIORATION [None]
  - DYSPEPSIA [None]
  - VOMITING [None]
  - ABDOMINAL PAIN [None]
  - DIARRHOEA [None]
